FAERS Safety Report 10304296 (Version 2)
Quarter: 2014Q3

REPORT INFORMATION
  Report Type: Spontaneous
  Country: IE (occurrence: IE)
  Receive Date: 20140714
  Receipt Date: 20140826
  Transmission Date: 20150326
  Serious: Yes (Death)
  Sender: FDA-Public Use
  Company Number: IE-AMGEN-IRLSP2014052511

PATIENT
  Age: 68 Year
  Sex: Male
  Weight: 74 kg

DRUGS (10)
  1. PROSTAB [Concomitant]
     Indication: PROSTATE CANCER
     Dosage: UNK
  2. NEULASTA [Suspect]
     Active Substance: PEGFILGRASTIM
     Indication: PROPHYLAXIS
     Dosage: 6 MG, 24 HOURS POST CHEMO EVERY THREE WEEKS
     Route: 058
     Dates: start: 20120518, end: 201309
  3. DELTACORTRIL                       /00016201/ [Concomitant]
     Dosage: UNK
  4. DIFENE [Concomitant]
     Active Substance: DICLOFENAC SODIUM
     Dosage: UNK
  5. ASPIRIN. [Concomitant]
     Active Substance: ASPIRIN
     Dosage: UNK
  6. LOSEC                              /00661201/ [Concomitant]
     Dosage: UNK
  7. MAXOLON [Concomitant]
     Active Substance: METOCLOPRAMIDE HYDROCHLORIDE
     Dosage: UNK
  8. DOCETAXEL [Concomitant]
     Active Substance: DOCETAXEL
     Indication: PROSTATE CANCER
     Dosage: UNK
  9. DENOSUMAB [Concomitant]
     Active Substance: DENOSUMAB
     Dosage: UNK
  10. CABAZITAXEL [Concomitant]
     Active Substance: CABAZITAXEL
     Indication: PROSTATE CANCER
     Dosage: UNK

REACTIONS (1)
  - Prostate cancer [Fatal]
